FAERS Safety Report 4982288-1 (Version None)
Quarter: 2006Q2

REPORT INFORMATION
  Report Type: 
  Country: None (occurrence: None)
  Receive Date: 20060424
  Receipt Date: 20060424
  Transmission Date: 20061013
  Serious: Yes (Life-Threatening)
  Sender: FDA-Public Use
  Company Number: None

PATIENT
  Age: 86 Year
  Sex: Female
  Weight: 45 kg

DRUGS (3)
  1. TEQUIN [Suspect]
     Indication: ABDOMINAL INFECTION
     Dosage: 200 MG DAILY IV
     Route: 042
     Dates: start: 20060316, end: 20060317
  2. TEQUIN [Suspect]
     Indication: OBSTRUCTION
     Dosage: 200 MG DAILY IV
     Route: 042
     Dates: start: 20060316, end: 20060317
  3. FLAGYL [Concomitant]

REACTIONS (2)
  - CONVULSION [None]
  - HYPOGLYCAEMIA [None]
